FAERS Safety Report 20398034 (Version 2)
Quarter: 2022Q1

REPORT INFORMATION
  Report Type: Spontaneous
  Country: US (occurrence: US)
  Receive Date: 20220131
  Receipt Date: 20220201
  Transmission Date: 20220424
  Serious: No
  Sender: FDA-Public Use
  Company Number: US-ABBVIE-21K-163-3905873-00

PATIENT
  Age: 52 Year
  Sex: Female
  Weight: 65.830 kg

DRUGS (5)
  1. HUMIRA [Suspect]
     Active Substance: ADALIMUMAB
     Indication: Psoriatic arthropathy
     Route: 058
     Dates: start: 202011
  2. HUMIRA [Suspect]
     Active Substance: ADALIMUMAB
     Indication: Eye inflammation
  3. METHIMAZOLE [Concomitant]
     Active Substance: METHIMAZOLE
     Indication: Thyroid disorder
  4. DULOXETINE [Concomitant]
     Active Substance: DULOXETINE
     Indication: Thyroid disorder
  5. COVID-19 VACCINE [Concomitant]
     Indication: COVID-19 immunisation
     Dosage: JOHNSON AND JOHNSON
     Route: 030
     Dates: start: 20210325, end: 20210325

REACTIONS (8)
  - Eye inflammation [Not Recovered/Not Resolved]
  - Intraocular pressure increased [Recovering/Resolving]
  - Visual impairment [Not Recovered/Not Resolved]
  - Injection site warmth [Recovering/Resolving]
  - Injection site erythema [Recovering/Resolving]
  - Injection site swelling [Recovering/Resolving]
  - Injection site pruritus [Recovering/Resolving]
  - Injection site papule [Recovering/Resolving]

NARRATIVE: CASE EVENT DATE: 20210401
